FAERS Safety Report 4541214-X (Version None)
Quarter: 2004Q4

REPORT INFORMATION
  Report Type: 
  Country: None (occurrence: None)
  Receive Date: 20041227
  Receipt Date: 20041221
  Transmission Date: 20050328
  Serious: Yes (Disabling, Other)
  Sender: FDA-Public Use
  Company Number: THQ2004A01050

PATIENT
  Age: 60 Year
  Sex: Male

DRUGS (5)
  1. LANSOPRAZOLE [Suspect]
     Dosage: 15 MG
     Route: 048
     Dates: start: 20040101
  2. WARFARIN SODIUM [Suspect]
     Dosage: 5 MG AND 3 MG ON ALTERNATE DAYS
     Route: 048
     Dates: start: 20040101
  3. ASPIRIN TAB [Concomitant]
  4. PLAVIX [Concomitant]
  5. DILTIAZEM [Concomitant]

REACTIONS (2)
  - CONTUSION [None]
  - DRUG INTERACTION [None]
